FAERS Safety Report 14405308 (Version 5)
Quarter: 2018Q2

REPORT INFORMATION
  Report Type: Report from Study
  Country: CA (occurrence: CA)
  Receive Date: 20180118
  Receipt Date: 20180629
  Transmission Date: 20180711
  Serious: Yes (Hospitalization)
  Sender: FDA-Public Use
  Company Number: PHHY2015CA077126

PATIENT
  Age: 71 Year
  Sex: Male

DRUGS (7)
  1. ASPIRIN. [Concomitant]
     Active Substance: ASPIRIN
     Indication: PRODUCT USED FOR UNKNOWN INDICATION
     Route: 065
  2. AMIODARONE [Concomitant]
     Active Substance: AMIODARONE
     Indication: PRODUCT USED FOR UNKNOWN INDICATION
     Route: 065
  3. SANDOSTATIN LAR DEPOT [Suspect]
     Active Substance: OCTREOTIDE ACETATE
     Indication: NEUROENDOCRINE CARCINOMA METASTATIC
     Dosage: 30 MG QMO
     Route: 030
     Dates: start: 20150623
  4. SANDOSTATIN LAR DEPOT [Suspect]
     Active Substance: OCTREOTIDE ACETATE
     Dosage: 40 MG, QMO (EVERY 4 WEEKS)
     Route: 030
     Dates: start: 20151127
  5. SANDOSTATIN [Suspect]
     Active Substance: OCTREOTIDE ACETATE
     Indication: NEUROENDOCRINE CARCINOMA METASTATIC
     Dosage: 100 UG, TID (FOR 3 WEEKS)
     Route: 058
     Dates: start: 20150609, end: 2015
  6. SANDOSTATIN LAR DEPOT [Suspect]
     Active Substance: OCTREOTIDE ACETATE
     Dosage: 60 MG QMO (EVERY 4 WEEKS)
     Route: 030
     Dates: start: 20160302
  7. SANDOSTATIN LAR DEPOT [Suspect]
     Active Substance: OCTREOTIDE ACETATE
     Dosage: 40 MG, QMO
     Route: 030

REACTIONS (21)
  - Blood pressure diastolic decreased [Unknown]
  - Generalised erythema [Unknown]
  - Fatigue [Unknown]
  - Musculoskeletal pain [Recovering/Resolving]
  - Hypokinesia [Unknown]
  - Asthenia [Unknown]
  - Decreased interest [Unknown]
  - Heart rate increased [Unknown]
  - Angina pectoris [Unknown]
  - Ocular hyperaemia [Unknown]
  - Abdominal distension [Unknown]
  - Injection site bruising [Recovered/Resolved]
  - Flushing [Unknown]
  - Gastrooesophageal reflux disease [Unknown]
  - Feeling hot [Unknown]
  - Pain in extremity [Recovering/Resolving]
  - Needle issue [Unknown]
  - Mood altered [Unknown]
  - Arthralgia [Recovering/Resolving]
  - Blood pressure systolic increased [Unknown]
  - Dizziness [Unknown]

NARRATIVE: CASE EVENT DATE: 20150623
